FAERS Safety Report 4848481-3 (Version None)
Quarter: 2005Q4

REPORT INFORMATION
  Report Type: 
  Country: None (occurrence: None)
  Receive Date: 20051115
  Receipt Date: 20050812
  Transmission Date: 20060501
  Serious: No
  Sender: FDA-Public Use
  Company Number: S05-USA-04071-01

PATIENT
  Age: 78 Year
  Sex: Female

DRUGS (9)
  1. NAMENDA [Suspect]
     Indication: DEMENTIA ALZHEIMER'S TYPE
     Dosage: 5 MG QD PO
     Route: 048
     Dates: start: 20050725, end: 20050731
  2. NAMENDA [Suspect]
     Indication: DEMENTIA ALZHEIMER'S TYPE
     Dosage: 5 MG BID PO
     Route: 048
     Dates: start: 20050801, end: 20050807
  3. NAMENDA [Suspect]
     Indication: DEMENTIA ALZHEIMER'S TYPE
     Dosage: 15 MG QD PO
     Route: 048
     Dates: start: 20050808
  4. ALBUTEROL [Concomitant]
  5. THEOPHYLLINE [Concomitant]
  6. NAPROSYN [Concomitant]
  7. VITAMIN B COMPLEX CAP [Concomitant]
  8. CALCIUM GLUCONATE [Concomitant]
  9. POTASSIUM [Concomitant]

REACTIONS (2)
  - DISTURBANCE IN ATTENTION [None]
  - SOMNOLENCE [None]
